FAERS Safety Report 17117981 (Version 1)
Quarter: 2019Q4

REPORT INFORMATION
  Report Type: Spontaneous
  Country: US (occurrence: US)
  Receive Date: 20191205
  Receipt Date: 20191205
  Transmission Date: 20200122
  Serious: Yes (Other)
  Sender: FDA-Public Use
  Company Number: US-SA-2019SA335146

PATIENT
  Age: 47 Year
  Sex: Female
  Weight: 68.03 kg

DRUGS (26)
  1. METOPROLOL. [Concomitant]
     Active Substance: METOPROLOL
     Dosage: 25 MG, BID
     Route: 048
     Dates: start: 20140119
  2. OXYCODONE [Concomitant]
     Active Substance: OXYCODONE
     Dosage: UNK UNK, UNK
     Route: 065
  3. DIAZEPAM. [Concomitant]
     Active Substance: DIAZEPAM
     Dosage: 5 MG, EVERY 6 (SIX) HOURS AS NEEDED
     Route: 048
     Dates: start: 20140119
  4. PROMETHAZINE [Concomitant]
     Active Substance: PROMETHAZINE HYDROCHLORIDE
     Indication: VOMITING
     Dosage: 25 MG, EVERY 4 (FOUR) HOURS AS NEEDED
     Route: 048
     Dates: start: 20140119
  5. KLONOPIN [Concomitant]
     Active Substance: CLONAZEPAM
     Dosage: UNK UNK, UNK
     Route: 048
  6. HYDROCODONE [Concomitant]
     Active Substance: HYDROCODONE
     Dosage: UNK UNK, UNK
     Route: 065
     Dates: start: 20100119, end: 20141210
  7. ZOFRAN [Concomitant]
     Active Substance: ONDANSETRON HYDROCHLORIDE
     Indication: VOMITING
  8. PARAPLATIN [Concomitant]
     Active Substance: CARBOPLATIN
     Indication: BREAST CANCER FEMALE
     Dosage: 780 MG + 770 MG
     Route: 065
  9. LOMOTIL [Concomitant]
     Active Substance: ATROPINE SULFATE\DIPHENOXYLATE HYDROCHLORIDE
     Indication: DIARRHOEA
     Dosage: 1 DF, 4 (FOUR) TIMES A DAY AS NEEDED
     Dates: start: 20170214, end: 20180302
  10. PROMETHAZINE [Concomitant]
     Active Substance: PROMETHAZINE HYDROCHLORIDE
     Indication: NAUSEA
     Dosage: 25 MG, EVERY 4 (FOUR) HOURS AS NEEDED
     Route: 048
     Dates: start: 20110210
  11. CLONAZEPAM. [Concomitant]
     Active Substance: CLONAZEPAM
     Dosage: UNK UNK, UNK
     Route: 065
     Dates: start: 20140119
  12. CLONAZEPAM. [Concomitant]
     Active Substance: CLONAZEPAM
     Dosage: UNK UNK, UNK
     Route: 065
     Dates: start: 20160701
  13. LIDOCAINE. [Concomitant]
     Active Substance: LIDOCAINE
     Indication: MOUTH ULCERATION
     Dosage: 15 ML, 3 TIMES A DAY AS NEEDED
     Route: 048
     Dates: start: 20170228, end: 20180302
  14. OXYCODONE AND ACETAMINOPHEN [Concomitant]
     Active Substance: ACETAMINOPHEN\OXYCODONE HYDROCHLORIDE
     Dosage: 1 DF, EVERY 4 (FOUR) HOURS AS NEEDED
     Route: 048
     Dates: start: 20140119
  15. DIAZEPAM. [Concomitant]
     Active Substance: DIAZEPAM
     Indication: ANXIETY
     Dosage: 5 MG, EVERY 6 (SIX) HOURS AS NEEDED
     Route: 048
     Dates: start: 20100106, end: 20121013
  16. HYDROCODONE [Concomitant]
     Active Substance: HYDROCODONE
     Dosage: UNK UNK, UNK
     Route: 065
     Dates: start: 20140119
  17. BENTYL [Concomitant]
     Active Substance: DICYCLOMINE HYDROCHLORIDE
     Dosage: 20 MG, QID
     Route: 048
     Dates: start: 20170207, end: 20180302
  18. EMLA [Concomitant]
     Active Substance: LIDOCAINE\PRILOCAINE
     Indication: PAIN
     Dosage: APPLY TOPICALLY ONCE AS NEEDED
     Route: 061
     Dates: start: 20170117, end: 20180302
  19. MYCOSTATIN [Concomitant]
     Active Substance: NYSTATIN
     Dosage: 5 ML, QID
     Route: 048
     Dates: start: 20170228, end: 20180302
  20. TAXOTERE [Suspect]
     Active Substance: DOCETAXEL
     Indication: BREAST CANCER FEMALE
     Dosage: 129 MG, Q3W
     Route: 042
     Dates: start: 20170119, end: 20170119
  21. OXYCODONE AND ACETAMINOPHEN [Concomitant]
     Active Substance: ACETAMINOPHEN\OXYCODONE HYDROCHLORIDE
     Dosage: 1 DF, EVERY 4 (FOUR) HOURS AS NEEDED
     Route: 048
     Dates: start: 20150311
  22. HYOSCYAMINE. [Concomitant]
     Active Substance: HYOSCYAMINE
     Indication: MUSCLE SPASMS
     Dosage: 0.125 MG, 4 (FOUR) TIMES A DAY AS NEEDED
     Route: 048
     Dates: start: 20170214
  23. ZOFRAN [Concomitant]
     Active Substance: ONDANSETRON HYDROCHLORIDE
     Indication: NAUSEA
     Dosage: 8 MG, 3 (THREE) TIMES A DAY AS NEEDED
     Dates: start: 20170117
  24. DECADRON [Concomitant]
     Active Substance: DEXAMETHASONE
     Dosage: 2 DF, BID
     Route: 048
     Dates: start: 20170117, end: 20180302
  25. TAXOTERE [Suspect]
     Active Substance: DOCETAXEL
     Dosage: 129 MG, Q3W
     Route: 042
     Dates: start: 20170302, end: 20170302
  26. PARAPLATIN [Concomitant]
     Active Substance: CARBOPLATIN
     Dosage: 780 MG + 770 MG
     Route: 065

REACTIONS (2)
  - Psychological trauma [Unknown]
  - Alopecia [Recovering/Resolving]

NARRATIVE: CASE EVENT DATE: 201708
